FAERS Safety Report 4517695-4 (Version None)
Quarter: 2004Q4

REPORT INFORMATION
  Report Type: 
  Country: None (occurrence: None)
  Receive Date: 20041130
  Receipt Date: 20041111
  Transmission Date: 20050328
  Serious: Yes (Hospitalization)
  Sender: FDA-Public Use
  Company Number: A03200403628

PATIENT
  Age: 40 Year
  Sex: Female
  Weight: 65.7716 kg

DRUGS (10)
  1. PLAVIX [Suspect]
     Indication: CHEST PAIN
     Dosage: 1500 MG ONCE ORAL
     Route: 048
     Dates: start: 20041021, end: 20041021
  2. PLAVIX [Suspect]
     Indication: SUICIDE ATTEMPT
     Dosage: 1500 MG ONCE ORAL
     Route: 048
     Dates: start: 20041021, end: 20041021
  3. AMBIEN [Suspect]
     Indication: SUICIDE ATTEMPT
     Dosage: 130 MG ONCE - ORAL
     Route: 048
     Dates: start: 20041021, end: 20041021
  4. DEPAKOTE [Suspect]
     Indication: CONVULSION
     Dosage: 4 GR ONCE ORAL
     Route: 048
     Dates: start: 20041021, end: 20041021
  5. DEPAKOTE [Suspect]
     Indication: SUICIDE ATTEMPT
     Dosage: 4 GR ONCE ORAL
     Route: 048
     Dates: start: 20041021, end: 20041021
  6. XANAX [Suspect]
     Indication: SUICIDE ATTEMPT
     Dosage: ORAL
     Route: 048
     Dates: start: 20041021, end: 20041021
  7. KLONOPIN [Suspect]
     Indication: SUICIDE ATTEMPT
     Dosage: ORAL
     Route: 048
     Dates: start: 20041021, end: 20041021
  8. LEXAPRO [Suspect]
     Indication: SUICIDE ATTEMPT
     Dosage: ORAL
     Route: 048
     Dates: start: 20041021, end: 20041021
  9. ACETYLSALICYLIC ACID [Concomitant]
  10. CLOPIDOGREL BISULFATE [Concomitant]

REACTIONS (4)
  - DEPRESSION [None]
  - LOSS OF CONSCIOUSNESS [None]
  - OVERDOSE [None]
  - SUICIDE ATTEMPT [None]
